FAERS Safety Report 13937115 (Version 4)
Quarter: 2017Q4

REPORT INFORMATION
  Report Type: Report from Study
  Country: US (occurrence: US)
  Receive Date: 20170905
  Receipt Date: 20171214
  Transmission Date: 20180320
  Serious: Yes (Hospitalization)
  Sender: FDA-Public Use
  Company Number: US-PFIZER INC-2017296797

PATIENT
  Age: 86 Year
  Sex: Female

DRUGS (16)
  1. EXCEDRIN [Concomitant]
     Active Substance: ACETAMINOPHEN\ASPIRIN\CAFFEINE
     Dosage: UNK
  2. COMBIVENT [Concomitant]
     Active Substance: ALBUTEROL SULFATE\IPRATROPIUM BROMIDE
     Dosage: UNK
  3. OMEGA 3 [Concomitant]
     Active Substance: OMEGA-3 FATTY ACIDS
     Dosage: UNK
  4. NORVASC [Concomitant]
     Active Substance: AMLODIPINE BESYLATE
     Dosage: UNK
  5. ALPRAZOLAM. [Concomitant]
     Active Substance: ALPRAZOLAM
     Dosage: UNK
  6. METHYLPREDNISOLONE. [Concomitant]
     Active Substance: METHYLPREDNISOLONE
     Dosage: UNK
  7. COLACE [Concomitant]
     Active Substance: DOCUSATE SODIUM
     Dosage: UNK
  8. MIDODRINE [Concomitant]
     Active Substance: MIDODRINE
     Dosage: UNK
  9. ANASTROZOLE. [Concomitant]
     Active Substance: ANASTROZOLE
     Dosage: UNK
  10. CIPROFLOXACIN. [Concomitant]
     Active Substance: CIPROFLOXACIN
     Dosage: UNK
     Dates: end: 20170911
  11. PERCOCET [Concomitant]
     Active Substance: ACETAMINOPHEN\OXYCODONE HYDROCHLORIDE
     Dosage: UNK
  12. IBRANCE [Suspect]
     Active Substance: PALBOCICLIB
     Indication: BREAST CANCER
     Dosage: 100MG, CYCLIC (DAILY WITH FOOD, FOR 21 DAYS ON, THEN 7 DAYS OFF)
     Route: 048
     Dates: start: 20170522, end: 20170628
  13. IBRANCE [Suspect]
     Active Substance: PALBOCICLIB
     Dosage: 100MG, CYCLIC (DAILY WITH FOOD, FOR 21 DAYS ON, THEN 7 DAYS OFF)
     Route: 048
     Dates: start: 20170703, end: 20170911
  14. LOVASTATIN. [Concomitant]
     Active Substance: LOVASTATIN
     Dosage: UNK
  15. METOCLOPRAMIDE. [Concomitant]
     Active Substance: METOCLOPRAMIDE
     Dosage: UNK
  16. ASPIRIN. [Concomitant]
     Active Substance: ASPIRIN
     Dosage: UNK

REACTIONS (7)
  - Alopecia [Unknown]
  - Fatigue [Unknown]
  - Dyspnoea [Unknown]
  - Pneumonia [Recovering/Resolving]
  - Cardiac failure congestive [Recovering/Resolving]
  - White blood cell count decreased [Unknown]
  - Urinary tract infection [Unknown]

NARRATIVE: CASE EVENT DATE: 2017
